FAERS Safety Report 7793637-3 (Version None)
Quarter: 2011Q4

REPORT INFORMATION
  Report Type: 
  Country: None (occurrence: None)
  Receive Date: 20111003
  Receipt Date: 20110331
  Transmission Date: 20120403
  Serious: No
  Sender: FDA-Public Use
  Company Number: US-BAYER-2011-028874

PATIENT
  Age: 70 Year
  Sex: Male

DRUGS (10)
  1. JANUVIA [Concomitant]
  2. ZESTORETIC [Concomitant]
  3. INSULIN [Concomitant]
  4. ZESTRIL [Concomitant]
  5. TOPROL-XL [Concomitant]
  6. GLUCOPHAGE [Concomitant]
  7. LEVITRA [Suspect]
     Indication: ERECTILE DYSFUNCTION
     Dosage: 20 MG, PRN
     Route: 048
  8. NORVASC [Concomitant]
  9. ASPIRIN [Concomitant]
  10. PRAVASTATIN [Concomitant]

REACTIONS (4)
  - THERAPEUTIC RESPONSE DECREASED [None]
  - EXPIRED DRUG ADMINISTERED [None]
  - FLUSHING [None]
  - DRUG INEFFECTIVE [None]
